FAERS Safety Report 14159308 (Version 1)
Quarter: 2017Q4

REPORT INFORMATION
  Report Type: Spontaneous
  Country: NL (occurrence: NL)
  Receive Date: 20171103
  Receipt Date: 20171103
  Transmission Date: 20180321
  Serious: Yes (Life-Threatening, Other)
  Sender: FDA-Public Use
  Company Number: NL-MYLANLABS-2017M1069018

PATIENT
  Age: 51 Year
  Sex: Male

DRUGS (2)
  1. ATORVASTATINE MYLAN 40 MG, FILMOMHULDE TABLETTEN [Suspect]
     Active Substance: ATORVASTATIN
     Indication: HYPERCHOLESTEROLAEMIA
     Dosage: ONE TABLET ONCE A DAY
     Route: 048
     Dates: start: 20170915, end: 20170928
  2. EZETROL [Concomitant]
     Active Substance: EZETIMIBE
     Route: 048

REACTIONS (6)
  - Abdominal discomfort [Recovered/Resolved]
  - Gynaecomastia [Recovered/Resolved]
  - Headache [Recovered/Resolved]
  - Depressed mood [Recovered/Resolved]
  - Suicidal ideation [Recovered/Resolved]
  - Swollen tongue [Recovered/Resolved]

NARRATIVE: CASE EVENT DATE: 20170916
